FAERS Safety Report 24655171 (Version 1)
Quarter: 2024Q4

REPORT INFORMATION
  Report Type: Spontaneous
  Country: US (occurrence: US)
  Receive Date: 20241123
  Receipt Date: 20241123
  Transmission Date: 20250114
  Serious: No
  Sender: ALEXION PHARMACEUTICALS
  Company Number: US-AstraZeneca-CH-00754001A

PATIENT

DRUGS (4)
  1. TRUQAP [Suspect]
     Active Substance: CAPIVASERTIB
     Indication: Breast cancer
     Dosage: UNK, INTERMITTENT
  2. TRUQAP [Suspect]
     Active Substance: CAPIVASERTIB
     Dosage: UNK, INTERMITTENT
  3. TRUQAP [Suspect]
     Active Substance: CAPIVASERTIB
     Dosage: UNK, INTERMITTENT
  4. TRUQAP [Suspect]
     Active Substance: CAPIVASERTIB
     Dosage: UNK, INTERMITTENT

REACTIONS (2)
  - Fatigue [Unknown]
  - Abdominal discomfort [Unknown]
